FAERS Safety Report 5822530-8 (Version None)
Quarter: 2008Q3

REPORT INFORMATION
  Report Type: 
  Country: None (occurrence: None)
  Receive Date: 20080725
  Receipt Date: 20080717
  Transmission Date: 20090109
  Serious: Yes (Hospitalization, Other)
  Sender: FDA-Public Use
  Company Number: JP-AVENTIS-200811425JP

PATIENT
  Age: 56 Year
  Sex: Male

DRUGS (5)
  1. ALLEGRA [Suspect]
     Route: 048
     Dates: start: 20080425, end: 20080503
  2. LITHIUM CARBONATE [Concomitant]
     Route: 048
  3. TOLEDOMIN [Concomitant]
     Route: 048
  4. CARBAMAZEPINE [Concomitant]
  5. RHYTHMY [Concomitant]
     Route: 048

REACTIONS (4)
  - BLOOD CREATINE PHOSPHOKINASE INCREASED [None]
  - LOSS OF CONSCIOUSNESS [None]
  - RHABDOMYOLYSIS [None]
  - THERAPEUTIC AGENT TOXICITY [None]
